FAERS Safety Report 4326896-X (Version None)
Quarter: 2004Q1

REPORT INFORMATION
  Report Type: 
  Country: None (occurrence: None)
  Receive Date: 20040330
  Receipt Date: 20040227
  Transmission Date: 20041129
  Serious: Yes (Disabling)
  Sender: FDA-Public Use
  Company Number: US-MERCK-0403USA00031

PATIENT
  Age: 78 Year
  Sex: Female

DRUGS (5)
  1. [THERAPY UNSPECIFIED] [Concomitant]
     Route: 065
  2. ASPIRIN [Concomitant]
     Route: 065
  3. ALPHAGAN [Concomitant]
     Route: 065
  4. CARDIZEM [Concomitant]
     Route: 065
  5. ZETIA [Suspect]
     Indication: BLOOD CHOLESTEROL INCREASED
     Route: 048

REACTIONS (6)
  - ANTIBODY TEST POSITIVE [None]
  - GINGIVAL PAIN [None]
  - INCONTINENCE [None]
  - MYASTHENIA GRAVIS [None]
  - PAIN [None]
  - TOOTHACHE [None]
